FAERS Safety Report 9401540 (Version 22)
Quarter: 2014Q4

REPORT INFORMATION
  Report Type: Report from Study
  Country: CA (occurrence: CA)
  Receive Date: 20130716
  Receipt Date: 20141217
  Transmission Date: 20150529
  Serious: Yes (Hospitalization, Other)
  Sender: FDA-Public Use
  Company Number: CA-ROCHE-1216662

PATIENT
  Age: 60 Year
  Sex: Male
  Weight: 84 kg

DRUGS (15)
  1. AVASTIN [Suspect]
     Active Substance: BEVACIZUMAB
     Indication: GLIOBLASTOMA
     Route: 042
     Dates: start: 20130423
  2. RITUXAN [Suspect]
     Active Substance: RITUXIMAB
     Indication: PRODUCT USED FOR UNKNOWN INDICATION
     Route: 042
     Dates: start: 20130302, end: 20130326
  3. DECADRON [Suspect]
     Active Substance: DEXAMETHASONE
     Indication: PRODUCT USED FOR UNKNOWN INDICATION
     Route: 065
     Dates: end: 20130619
  4. AVASTIN [Suspect]
     Active Substance: BEVACIZUMAB
     Route: 042
     Dates: start: 20140227
  5. AVASTIN [Suspect]
     Active Substance: BEVACIZUMAB
     Route: 042
     Dates: start: 20140808, end: 20140821
  6. SOLU-MEDROL [Suspect]
     Active Substance: METHYLPREDNISOLONE SODIUM SUCCINATE
     Indication: PREMEDICATION
     Route: 042
     Dates: start: 20130423
  7. LYRICA [Suspect]
     Active Substance: PREGABALIN
     Indication: PRODUCT USED FOR UNKNOWN INDICATION
     Route: 065
     Dates: start: 20131216
  8. AVASTIN [Suspect]
     Active Substance: BEVACIZUMAB
     Route: 042
     Dates: start: 20140606
  9. FUROSEMIDE. [Concomitant]
     Active Substance: FUROSEMIDE
  10. KEPPRA [Concomitant]
     Active Substance: LEVETIRACETAM
  11. BENADRYL [Concomitant]
     Active Substance: DIPHENHYDRAMINE HYDROCHLORIDE
     Route: 048
     Dates: start: 20130423
  12. HYDROCHLOROTHIAZIDE. [Concomitant]
     Active Substance: HYDROCHLOROTHIAZIDE
  13. AVASTIN [Suspect]
     Active Substance: BEVACIZUMAB
     Route: 042
     Dates: start: 20131206
  14. RITUXAN [Suspect]
     Active Substance: RITUXIMAB
     Route: 042
     Dates: start: 20130302, end: 20130326
  15. TYLENOL [Concomitant]
     Active Substance: ACETAMINOPHEN
     Route: 048
     Dates: start: 20130423

REACTIONS (36)
  - White blood cell count decreased [Unknown]
  - Mean cell haemoglobin concentration decreased [Unknown]
  - Haemoglobin decreased [Recovering/Resolving]
  - Arthralgia [Not Recovered/Not Resolved]
  - Red cell distribution width increased [Unknown]
  - Heart rate decreased [Unknown]
  - Nephrolithiasis [Recovered/Resolved]
  - Blood cholesterol increased [Unknown]
  - Blood triglycerides increased [Unknown]
  - Pruritus [Not Recovered/Not Resolved]
  - Skin irritation [Unknown]
  - Nasopharyngitis [Recovered/Resolved]
  - Lymphocyte count decreased [Unknown]
  - Weight decreased [Unknown]
  - Haematocrit decreased [Unknown]
  - Mean cell volume increased [Unknown]
  - Mean cell haemoglobin increased [Unknown]
  - Infusion related reaction [Unknown]
  - Medication error [Unknown]
  - Neutrophil count decreased [Unknown]
  - Drug ineffective [Unknown]
  - Arthralgia [Not Recovered/Not Resolved]
  - Platelet count decreased [Recovered/Resolved]
  - Headache [Unknown]
  - Pain in extremity [Not Recovered/Not Resolved]
  - High density lipoprotein increased [Unknown]
  - Red blood cell count decreased [Unknown]
  - Malignant neoplasm progression [Unknown]
  - Pain in extremity [Unknown]
  - Abdominal pain [Recovered/Resolved]
  - Bronchitis [Recovered/Resolved]
  - Epilepsy [Unknown]
  - Confusional state [Recovered/Resolved]
  - Low density lipoprotein increased [Unknown]
  - Musculoskeletal pain [Not Recovered/Not Resolved]
  - Fatigue [Unknown]

NARRATIVE: CASE EVENT DATE: 201304
